FAERS Safety Report 10011771 (Version 2)
Quarter: 2014Q2

REPORT INFORMATION
  Report Type: Spontaneous
  Country: US (occurrence: US)
  Receive Date: 20140314
  Receipt Date: 20140406
  Transmission Date: 20141212
  Serious: Yes (Other)
  Sender: FDA-Public Use
  Company Number: US-BRISTOL-MYERS SQUIBB COMPANY-20411021

PATIENT
  Age: 74 Year
  Sex: Female
  Weight: 68.03 kg

DRUGS (16)
  1. BYETTA [Suspect]
     Indication: TYPE 2 DIABETES MELLITUS
     Dates: start: 20070509
  2. GLYBURIDE [Concomitant]
     Dosage: TABS
     Route: 048
  3. LOSARTAN POTASSIUM + HCTZ [Concomitant]
     Dosage: 50/12.5MG
     Route: 048
  4. PANTOPRAZOLE [Concomitant]
     Route: 048
  5. LOVASTATIN [Concomitant]
     Route: 048
  6. LEVOTHYROXINE [Concomitant]
     Route: 048
  7. CALCIUM + MAGNESIUM [Concomitant]
  8. VITAMIN D [Concomitant]
  9. FIBERCON [Concomitant]
  10. COENZYME-Q10 [Concomitant]
  11. DOXYCYCLINE [Concomitant]
  12. ACIDOPHILUS [Concomitant]
  13. ASPIRIN [Concomitant]
  14. COLACE [Concomitant]
  15. FISH OIL [Concomitant]
  16. FIBERCON [Concomitant]

REACTIONS (2)
  - Cataract [Recovering/Resolving]
  - Goitre [Unknown]
